FAERS Safety Report 24675495 (Version 1)
Quarter: 2024Q4

REPORT INFORMATION
  Report Type: Spontaneous
  Country: US (occurrence: US)
  Receive Date: 20241128
  Receipt Date: 20241128
  Transmission Date: 20250114
  Serious: Yes (Other)
  Sender: AMGEN
  Company Number: US-AMGEN-USASP2024232024

PATIENT
  Age: 66 Year
  Sex: Female

DRUGS (5)
  1. OTEZLA [Suspect]
     Active Substance: APREMILAST
     Indication: Arthritis
     Dosage: UNK
     Route: 048
  2. OTEZLA [Suspect]
     Active Substance: APREMILAST
     Indication: Off label use
  3. OFEV [Suspect]
     Active Substance: NINTEDANIB
     Indication: Idiopathic pulmonary fibrosis
     Dosage: 150 MILLIGRAM
     Route: 048
  4. OFEV [Suspect]
     Active Substance: NINTEDANIB
     Dosage: 100 MILLIGRAM, Q12H
     Route: 048
     Dates: start: 20210524
  5. OFEV [Suspect]
     Active Substance: NINTEDANIB
     Dosage: 200 MILLIGRAM, Q12H
     Route: 048

REACTIONS (6)
  - Idiopathic pulmonary fibrosis [Unknown]
  - Diarrhoea [Unknown]
  - Arthritis [Unknown]
  - Abdominal discomfort [Unknown]
  - Drug interaction [Unknown]
  - Off label use [Unknown]
